FAERS Safety Report 23841978 (Version 2)
Quarter: 2024Q2

REPORT INFORMATION
  Report Type: Spontaneous
  Country: DE (occurrence: None)
  Receive Date: 20240510
  Receipt Date: 20240521
  Transmission Date: 20240716
  Serious: Yes (Life-Threatening)
  Sender: FDA-Public Use
  Company Number: DE-ROCHE-3559669

PATIENT
  Sex: Female

DRUGS (1)
  1. OCREVUS [Suspect]
     Active Substance: OCRELIZUMAB
     Indication: Product used for unknown indication
     Route: 065
     Dates: start: 202311

REACTIONS (4)
  - Pneumonitis [Not Recovered/Not Resolved]
  - Pyrexia [Not Recovered/Not Resolved]
  - B-lymphocyte count decreased [Unknown]
  - Hypogammaglobulinaemia [Unknown]

NARRATIVE: CASE EVENT DATE: 20240101
